FAERS Safety Report 15554169 (Version 1)
Quarter: 2018Q4

REPORT INFORMATION
  Report Type: Spontaneous
  Country: US (occurrence: US)
  Receive Date: 20181025
  Receipt Date: 20181025
  Transmission Date: 20190205
  Serious: Yes (Hospitalization, Disabling)
  Sender: FDA-Public Use
  Company Number: None

PATIENT
  Sex: Female

DRUGS (1)
  1. FLOXIN [Suspect]
     Active Substance: OFLOXACIN
     Indication: PHARYNGITIS

REACTIONS (10)
  - Confusional state [None]
  - Ligament disorder [None]
  - Pain [None]
  - Emotional distress [None]
  - Disability [None]
  - Limb injury [None]
  - Anxiety [None]
  - Hallucination [None]
  - Tendon rupture [None]
  - Muscle rupture [None]

NARRATIVE: CASE EVENT DATE: 19930404
